FAERS Safety Report 12988065 (Version 1)
Quarter: 2016Q4

REPORT INFORMATION
  Report Type: Spontaneous
  Country: IT (occurrence: IT)
  Receive Date: 20161130
  Receipt Date: 20161130
  Transmission Date: 20170207
  Serious: Yes (Other)
  Sender: FDA-Public Use
  Company Number: IT-MYLANLABS-2016M1051609

PATIENT

DRUGS (5)
  1. DACARBAZINE. [Suspect]
     Active Substance: DACARBAZINE
     Indication: HODGKIN^S DISEASE
     Dosage: 4500 MG/M2, CYCLE
  2. DOXORUBICIN [Suspect]
     Active Substance: DOXORUBICIN
     Indication: HODGKIN^S DISEASE
     Dosage: 300 MG/M2, CYCLE
     Route: 042
  3. BLEOMYCIN [Suspect]
     Active Substance: BLEOMYCIN SULFATE
     Indication: HODGKIN^S DISEASE
     Dosage: 120 MG/M2, CYCLE
  4. VINBLASTINE [Suspect]
     Active Substance: VINBLASTINE
     Indication: HODGKIN^S DISEASE
     Dosage: 72 MG/M2, CYCLE
  5. IFOSFAMIDE. [Concomitant]
     Active Substance: IFOSFAMIDE
     Indication: SYNOVIAL SARCOMA
     Dosage: 84 MG/M2, CYCLE

REACTIONS (3)
  - Product use issue [Unknown]
  - Infertility female [Unknown]
  - Intentional product misuse [Unknown]
